FAERS Safety Report 10522369 (Version 2)
Quarter: 2015Q1

REPORT INFORMATION
  Report Type: Spontaneous
  Country: IT (occurrence: IT)
  Receive Date: 20141016
  Receipt Date: 20150120
  Transmission Date: 20150720
  Serious: Yes (Other)
  Sender: FDA-Public Use
  Company Number: IT-SA-2014SA137959

PATIENT
  Age: 74 Year
  Sex: Female

DRUGS (5)
  1. NOVORAPID [Suspect]
     Active Substance: INSULIN ASPART
     Dosage: STRENGTH: 100U/ML
     Route: 058
     Dates: start: 20140101, end: 20140807
  2. BISOPROLOL HEMIFUMARATE [Concomitant]
     Active Substance: BISOPROLOL FUMARATE
     Route: 048
  3. SIMVASTATIN. [Concomitant]
     Active Substance: SIMVASTATIN
     Route: 048
  4. TRIATEC [Concomitant]
     Active Substance: RAMIPRIL
     Route: 048
  5. LANTUS [Suspect]
     Active Substance: INSULIN GLARGINE
     Route: 058
     Dates: start: 20140101, end: 20140807

REACTIONS (3)
  - Diabetes mellitus inadequate control [Recovering/Resolving]
  - Vomiting [Recovering/Resolving]
  - Hyperglycaemic unconsciousness [Recovering/Resolving]

NARRATIVE: CASE EVENT DATE: 20140807
